FAERS Safety Report 9516053 (Version 2)
Quarter: 2013Q4

REPORT INFORMATION
  Report Type: Spontaneous
  Country: US (occurrence: US)
  Receive Date: 20130911
  Receipt Date: 20131007
  Transmission Date: 20140711
  Serious: No
  Sender: FDA-Public Use
  Company Number: US-VERTEX PHARMACEUTICALS INC-2013-009192

PATIENT
  Age: 49 Year
  Sex: Female
  Weight: 90.7 kg

DRUGS (20)
  1. INCIVEK [Suspect]
     Indication: HEPATITIS C
     Dosage: 750 MG, TID
     Route: 048
     Dates: start: 20130819
  2. COPEGUS [Suspect]
     Indication: HEPATITIS C
     Dosage: 200 MG, BID
     Route: 048
     Dates: start: 20130819
  3. COPEGUS [Suspect]
     Dosage: 600 MG, BID
     Route: 048
  4. PEGASYS [Suspect]
     Indication: HEPATITIS C
     Dosage: 180 ?G, QW
     Route: 058
     Dates: start: 20130819
  5. LEXAPRO [Concomitant]
     Indication: DEPRESSION
  6. LEXAPRO [Concomitant]
     Indication: ANXIETY
  7. NASOCORT [Concomitant]
  8. IBUPROFEN [Concomitant]
     Indication: PAIN
  9. ASA [Concomitant]
  10. LOSARTAN [Concomitant]
     Indication: HYPERTENSION
  11. ACTOS [Concomitant]
     Indication: DIABETES MELLITUS
  12. GLYBURIDE [Concomitant]
     Indication: DIABETES MELLITUS
  13. TOPAMAX [Concomitant]
     Indication: MIGRAINE
  14. GABAPENTIN [Concomitant]
     Indication: MIGRAINE
  15. HYDROCHLOROTHIAZIDE [Concomitant]
     Indication: HYPERTENSION
     Route: 048
  16. MULTIVITAMIN [Concomitant]
     Indication: MEDICAL DIET
  17. ALBUTEROL SULFATE [Concomitant]
     Indication: ASTHMA
  18. IMITREX [Concomitant]
     Indication: MIGRAINE
  19. ELAVIL [Concomitant]
     Indication: SLEEP DISORDER
  20. NEXIUM [Concomitant]
     Indication: DYSPEPSIA

REACTIONS (13)
  - Frustration [Not Recovered/Not Resolved]
  - Chest discomfort [Not Recovered/Not Resolved]
  - Headache [Unknown]
  - Anxiety [Not Recovered/Not Resolved]
  - Hypoaesthesia [Not Recovered/Not Resolved]
  - Weight increased [Unknown]
  - Chest pain [Unknown]
  - Pain in extremity [Unknown]
  - Drug dose omission [Unknown]
  - Formication [Not Recovered/Not Resolved]
  - Pruritus generalised [Not Recovered/Not Resolved]
  - Rash papular [Recovered/Resolved]
  - Nausea [Unknown]
